FAERS Safety Report 6167449-0 (Version None)
Quarter: 2009Q2

REPORT INFORMATION
  Report Type: 
  Country: None (occurrence: None)
  Receive Date: 20090424
  Receipt Date: 20090417
  Transmission Date: 20091009
  Serious: Yes (Other)
  Sender: FDA-Public Use
  Company Number: PHHY2009BR13493

PATIENT
  Sex: Male

DRUGS (6)
  1. RASILEZ [Suspect]
     Indication: PROTEINURIA
     Dosage: 1 DF, QD
     Route: 048
     Dates: start: 20090407, end: 20090412
  2. RASILEZ [Suspect]
     Indication: HYPERTENSION
  3. APROVEL [Concomitant]
     Dosage: 1 TABLET IN THE MORNING
  4. RENORON [Concomitant]
     Indication: DEPRESSION
     Dosage: 1 DF (30 MG) AT NIGHT
  5. CYMBALTA [Concomitant]
     Indication: DEPRESSION
     Dosage: 1 DF IN THE MORNING
  6. VITAMINS NOS [Concomitant]
     Dosage: UNK

REACTIONS (13)
  - ANGIOEDEMA [None]
  - ARTHRALGIA [None]
  - BASOPHIL COUNT DECREASED [None]
  - BLISTER [None]
  - GAIT DISTURBANCE [None]
  - HYPERSENSITIVITY [None]
  - HYPOAESTHESIA ORAL [None]
  - INSOMNIA [None]
  - JOINT SWELLING [None]
  - LIP OEDEMA [None]
  - PAIN [None]
  - SKIN LESION [None]
  - URTICARIA [None]
